FAERS Safety Report 15656567 (Version 1)
Quarter: 2018Q4

REPORT INFORMATION
  Report Type: Report from Study
  Country: HN (occurrence: HN)
  Receive Date: 20181126
  Receipt Date: 20181126
  Transmission Date: 20190205
  Serious: Yes (Other)
  Sender: FDA-Public Use
  Company Number: HN-SANIK-2018SA316238AA

PATIENT
  Sex: Male

DRUGS (4)
  1. LINAGLIPTIN [Concomitant]
     Active Substance: LINAGLIPTIN
     Dosage: UNK UNK, UNK
     Route: 048
  2. INSULIN GLARGINE [Suspect]
     Active Substance: INSULIN GLARGINE
     Indication: DIABETES MELLITUS
     Dosage: 18 IU, QD
     Route: 058
     Dates: start: 2012
  3. PLAVIX [Suspect]
     Active Substance: CLOPIDOGREL BISULFATE
     Dosage: 1 DF, QOD
     Route: 048
  4. COPLAVIX [Suspect]
     Active Substance: ASPIRIN\CLOPIDOGREL BISULFATE
     Dosage: 1 DF, QOD
     Route: 048

REACTIONS (7)
  - Cataract [Not Recovered/Not Resolved]
  - Diabetic microangiopathy [Not Recovered/Not Resolved]
  - Contusion [Recovered/Resolved]
  - Glaucoma [Not Recovered/Not Resolved]
  - Diabetic retinopathy [Not Recovered/Not Resolved]
  - Auditory disorder [Not Recovered/Not Resolved]
  - Off label use [Unknown]

NARRATIVE: CASE EVENT DATE: 2012
